FAERS Safety Report 9681283 (Version 1)
Quarter: 2013Q4

REPORT INFORMATION
  Report Type: Spontaneous
  Country: US (occurrence: None)
  Receive Date: 20131108
  Receipt Date: 20131108
  Transmission Date: 20140711
  Serious: Yes (Life-Threatening, Hospitalization, Disabling)
  Sender: FDA-Public Use
  Company Number: None

PATIENT
  Age: 42 Year
  Sex: Male
  Weight: 113.4 kg

DRUGS (1)
  1. METHADONE 10MG [Suspect]
     Indication: ACCIDENT AT WORK
     Dosage: 1 PILL 2 X A DAY
     Route: 048
     Dates: start: 20130419, end: 20131107

REACTIONS (6)
  - Heart rate increased [None]
  - Chest discomfort [None]
  - Syncope [None]
  - Cardiac arrest [None]
  - Dyspnoea [None]
  - Jugular vein thrombosis [None]
